FAERS Safety Report 7524764-3 (Version None)
Quarter: 2011Q2

REPORT INFORMATION
  Report Type: 
  Country: None (occurrence: None)
  Receive Date: 20110525
  Receipt Date: 20110511
  Transmission Date: 20111010
  Serious: Yes (Hospitalization)
  Sender: FDA-Public Use
  Company Number: DSA_46729_2011

PATIENT
  Age: 87 Year
  Sex: Female

DRUGS (10)
  1. LEVOTHYROXINE SODIUM [Concomitant]
  2. FRAGMIN [Concomitant]
  3. XARELTO [Concomitant]
  4. ENALAPRIL MALEATE [Suspect]
     Indication: ESSENTIAL HYPERTENSION
     Dosage: 20 MG QD, ORAL
     Route: 048
     Dates: end: 20101108
  5. TORADOL [Suspect]
     Indication: PROPHYLAXIS
     Dosage: 30 MG/ML TWICE BID, SUBCUTANEOUS
     Route: 058
     Dates: start: 20101108, end: 20101109
  6. OXYCONTIN [Concomitant]
  7. ACETAMINOPHEN [Concomitant]
  8. METOPROLOL [Concomitant]
  9. EPINEPHRINE [Concomitant]
  10. NAROPIN [Concomitant]

REACTIONS (6)
  - HAEMOGLOBIN DECREASED [None]
  - INJURY [None]
  - POST PROCEDURAL HAEMORRHAGE [None]
  - THROMBOCYTOPENIA [None]
  - RENAL FAILURE ACUTE [None]
  - POST PROCEDURAL COMPLICATION [None]
